FAERS Safety Report 5092563-0 (Version None)
Quarter: 2006Q3

REPORT INFORMATION
  Report Type: 
  Country: None (occurrence: None)
  Receive Date: 20060830
  Receipt Date: 20060828
  Transmission Date: 20061208
  Serious: Yes (Life-Threatening)
  Sender: FDA-Public Use
  Company Number: PHRM2006FR02410

PATIENT
  Age: 2 Year
  Sex: Female

DRUGS (1)
  1. LAMPRENE [Suspect]
     Dosage: 1 TO 3 TABLETS ONCE
     Route: 048
     Dates: start: 20060724, end: 20060724

REACTIONS (13)
  - ABDOMINAL PAIN [None]
  - ACCIDENTAL DRUG INTAKE BY CHILD [None]
  - ACCIDENTAL EXPOSURE [None]
  - ANAEMIA [None]
  - ASPARTATE AMINOTRANSFERASE INCREASED [None]
  - ASTHENIA [None]
  - BLOOD ALKALINE PHOSPHATASE INCREASED [None]
  - GENERAL PHYSICAL HEALTH DETERIORATION [None]
  - HAEMATURIA [None]
  - HAEMOGLOBIN DECREASED [None]
  - JAUNDICE [None]
  - PALLOR [None]
  - RETICULOCYTOSIS [None]
